FAERS Safety Report 4850153-6 (Version None)
Quarter: 2005Q4

REPORT INFORMATION
  Report Type: 
  Country: None (occurrence: None)
  Receive Date: 20051123
  Receipt Date: 20050707
  Transmission Date: 20060501
  Serious: Yes (Hospitalization)
  Sender: FDA-Public Use
  Company Number: 2005098452

PATIENT
  Age: 76 Year
  Sex: Male

DRUGS (12)
  1. LIPITOR [Suspect]
     Indication: ILL-DEFINED DISORDER
     Dates: end: 20050112
  2. TRACLEER [Suspect]
     Indication: PULMONARY HYPERTENSION
     Dosage: 250 MG (125 MG, 2 IN 1 D) ORAL
     Route: 048
     Dates: start: 20040401, end: 20050531
  3. XENICAL [Concomitant]
  4. CARDURA [Concomitant]
  5. ALLOPURINOL [Concomitant]
  6. NORVASC [Concomitant]
  7. MIRAPEX [Concomitant]
  8. COUMADIN [Concomitant]
  9. LASIX [Concomitant]
  10. ALDACTONE [Concomitant]
  11. QUININE SULFATE [Concomitant]
  12. GLUCOSAMINE (GLUCOSAMINE) [Concomitant]

REACTIONS (3)
  - CHOLESTASIS [None]
  - HEPATITIS ACUTE [None]
  - LUNG NEOPLASM [None]
